FAERS Safety Report 20236712 (Version 1)
Quarter: 2021Q4

REPORT INFORMATION
  Report Type: Report from Study
  Country: US (occurrence: US)
  Receive Date: 20211228
  Receipt Date: 20211228
  Transmission Date: 20220303
  Serious: Yes (Hospitalization, Other)
  Sender: FDA-Public Use
  Company Number: US-BRISTOL-MYERS SQUIBB COMPANY-BMS-2021-137430

PATIENT
  Age: 27 Year
  Sex: Male
  Weight: 99 kg

DRUGS (4)
  1. TRIAMCINOLONE ACETONIDE [Suspect]
     Active Substance: TRIAMCINOLONE ACETONIDE
     Indication: Dermatitis atopic
     Dosage: APPROPRIATE GRAM (1 IN 1 D)
     Route: 061
     Dates: start: 20190827, end: 20200804
  2. UPADACITINIB [Suspect]
     Active Substance: UPADACITINIB
     Indication: Dermatitis atopic
     Dosage: 15 MILLIGRAM, QD
     Route: 048
     Dates: start: 20190827, end: 20211116
  3. LEVOCETIRIZINE [Concomitant]
     Active Substance: LEVOCETIRIZINE
     Indication: Dermatitis atopic
     Dosage: 5 MILLIGRAM, QD
     Route: 048
     Dates: start: 20190129
  4. AVEENO [Concomitant]
     Active Substance: DIMETHICONE\HOMOSALATE\OCTINOXATE\OCTISALATE\TITANIUM DIOXIDE
     Indication: Supportive care
     Dosage: APPROPRIATE ML (2 IN 1 ML)
     Route: 061
     Dates: start: 20210428

REACTIONS (1)
  - Lung neoplasm malignant [Not Recovered/Not Resolved]

NARRATIVE: CASE EVENT DATE: 20211022
